FAERS Safety Report 23837386 (Version 1)
Quarter: 2024Q2

REPORT INFORMATION
  Report Type: Report from Study
  Country: PH (occurrence: PH)
  Receive Date: 20240509
  Receipt Date: 20240509
  Transmission Date: 20240716
  Serious: Yes (Hospitalization)
  Sender: FDA-Public Use
  Company Number: PH-OTSUKA-2024_012753

PATIENT
  Age: 79 Year
  Sex: Male

DRUGS (2)
  1. TOLVAPTAN [Suspect]
     Active Substance: TOLVAPTAN
     Indication: Diuretic therapy
     Dosage: 0.5 DF (15 MG HALF TABLET EVERY MONDAY, WEDNESDAY, FRIDAY)
     Route: 048
     Dates: end: 202402
  2. USOSAN [Concomitant]
     Indication: Blood cholesterol
     Dosage: UNK
     Route: 065

REACTIONS (5)
  - Prostatic disorder [Recovered/Resolved]
  - Dialysis [Recovered/Resolved]
  - Wrong technique in product usage process [Unknown]
  - Inappropriate schedule of product administration [Unknown]
  - Underdose [Unknown]

NARRATIVE: CASE EVENT DATE: 20240216
